FAERS Safety Report 4573843-1 (Version None)
Quarter: 2005Q1

REPORT INFORMATION
  Report Type: 
  Country: None (occurrence: None)
  Receive Date: 20050203
  Receipt Date: 20050125
  Transmission Date: 20050727
  Serious: Yes (Other)
  Sender: FDA-Public Use
  Company Number: US014623

PATIENT
  Age: 23 Year
  Sex: Female

DRUGS (1)
  1. GABITRIL [Suspect]
     Dosage: 300 MG ONCE ORAL
     Route: 048

REACTIONS (4)
  - COMA [None]
  - CONVULSION [None]
  - INTENTIONAL MISUSE [None]
  - SUICIDE ATTEMPT [None]
